FAERS Safety Report 21758607 (Version 1)
Quarter: 2022Q4

REPORT INFORMATION
  Report Type: Spontaneous
  Country: GB (occurrence: None)
  Receive Date: 20221221
  Receipt Date: 20221221
  Transmission Date: 20230113
  Serious: Yes (Death, Life-Threatening, Hospitalization, Disabling, Other)
  Sender: FDA-Public Use
  Company Number: GB-MHRA-MED-202212071226073120-HJTGQ

PATIENT
  Age: 89 Year
  Sex: Female

DRUGS (1)
  1. VANCOMYCIN [Suspect]
     Active Substance: VANCOMYCIN
     Indication: Endocarditis
     Route: 065
     Dates: start: 20221123, end: 20221130

REACTIONS (3)
  - Acute kidney injury [Fatal]
  - Toxicity to various agents [Fatal]
  - Medication error [Unknown]

NARRATIVE: CASE EVENT DATE: 20221101
